FAERS Safety Report 12322953 (Version 3)
Quarter: 2016Q2

REPORT INFORMATION
  Report Type: Spontaneous
  Country: CA (occurrence: CA)
  Receive Date: 20160502
  Receipt Date: 20160523
  Transmission Date: 20160815
  Serious: Yes (Other)
  Sender: FDA-Public Use
  Company Number: CA-ABBVIE-16K-028-1614673-00

PATIENT
  Age: 77 Year
  Sex: Female

DRUGS (4)
  1. SULFASALAZINE. [Concomitant]
     Active Substance: SULFASALAZINE
     Indication: RHEUMATOID ARTHRITIS
     Route: 048
  2. HUMIRA [Suspect]
     Active Substance: ADALIMUMAB
     Indication: RHEUMATOID ARTHRITIS
     Route: 058
     Dates: end: 2013
  3. XELJANZ [Concomitant]
     Active Substance: TOFACITINIB CITRATE
     Indication: RHEUMATOID ARTHRITIS
     Route: 048
  4. PREDNISONE. [Suspect]
     Active Substance: PREDNISONE
     Indication: PRODUCT USED FOR UNKNOWN INDICATION
     Route: 065

REACTIONS (11)
  - Gait disturbance [Unknown]
  - Hip arthroplasty [Unknown]
  - Pain in extremity [Unknown]
  - Drug dependence [Unknown]
  - Hypertrophic cardiomyopathy [Unknown]
  - Drug ineffective [Unknown]
  - Fibromyalgia [Unknown]
  - Joint swelling [Not Recovered/Not Resolved]
  - Hypoacusis [Unknown]
  - Foot operation [Unknown]
  - Hypertension [Unknown]

NARRATIVE: CASE EVENT DATE: 20160411
